FAERS Safety Report 6825940-5 (Version None)
Quarter: 2010Q3

REPORT INFORMATION
  Report Type: 
  Country: None (occurrence: None)
  Receive Date: 20100709
  Receipt Date: 20100701
  Transmission Date: 20110219
  Serious: Yes (Hospitalization, Other)
  Sender: FDA-Public Use
  Company Number: US-ASTRAZENECA-2007UW18670

PATIENT
  Age: 47 Year
  Sex: Male
  Weight: 93 kg

DRUGS (43)
  1. SEROQUEL [Suspect]
     Indication: DEPRESSION
     Route: 048
     Dates: start: 19981217
  2. SEROQUEL [Suspect]
     Indication: BIPOLAR DISORDER
     Route: 048
     Dates: start: 19981217
  3. SEROQUEL [Suspect]
     Indication: OBSESSIVE-COMPULSIVE DISORDER
     Route: 048
     Dates: start: 19981217
  4. SEROQUEL [Suspect]
     Dosage: 100-300MG
     Route: 048
     Dates: start: 19990101
  5. SEROQUEL [Suspect]
     Dosage: 100-300MG
     Route: 048
     Dates: start: 19990101
  6. SEROQUEL [Suspect]
     Dosage: 100-300MG
     Route: 048
     Dates: start: 19990101
  7. SEROQUEL [Suspect]
     Dosage: 100-600 MG
     Route: 048
     Dates: start: 20011004, end: 20070416
  8. SEROQUEL [Suspect]
     Dosage: 100-600 MG
     Route: 048
     Dates: start: 20011004, end: 20070416
  9. SEROQUEL [Suspect]
     Dosage: 100-600 MG
     Route: 048
     Dates: start: 20011004, end: 20070416
  10. SEROQUEL [Suspect]
     Route: 048
     Dates: start: 20011015
  11. SEROQUEL [Suspect]
     Route: 048
     Dates: start: 20011015
  12. SEROQUEL [Suspect]
     Route: 048
     Dates: start: 20011015
  13. SEROQUEL [Suspect]
     Route: 048
     Dates: start: 20070508, end: 20070815
  14. SEROQUEL [Suspect]
     Route: 048
     Dates: start: 20070508, end: 20070815
  15. SEROQUEL [Suspect]
     Route: 048
     Dates: start: 20070508, end: 20070815
  16. VYTORIN [Concomitant]
     Indication: HYPERLIPIDAEMIA
     Dosage: 10/20 MG
     Dates: start: 20060911
  17. NIASPAN [Concomitant]
     Indication: HYPERLIPIDAEMIA
     Route: 048
  18. NIASPAN [Concomitant]
     Dosage: 50-100 MG
     Route: 048
     Dates: start: 20020221
  19. LOVASTATIN [Concomitant]
     Indication: HYPERLIPIDAEMIA
     Dates: start: 20030721
  20. AMBIEN [Concomitant]
     Route: 048
     Dates: start: 20010102
  21. EFFEXOR XR [Concomitant]
     Dosage: 150-300 MG
     Route: 048
     Dates: start: 19981217
  22. DEPAKOTE ER [Concomitant]
     Route: 048
     Dates: start: 20010618
  23. LORTAB [Concomitant]
  24. LAMICTAL [Concomitant]
     Dosage: 100-200 MG
     Route: 048
     Dates: start: 19981217
  25. LIPITOR [Concomitant]
     Dates: start: 20020819
  26. LISINOPRIL [Concomitant]
     Route: 048
     Dates: start: 20030827
  27. LUNESTA [Concomitant]
     Dates: start: 20051215
  28. PROPRANOLOL [Concomitant]
     Dates: start: 20030926
  29. REMERON [Concomitant]
     Dosage: 30-45 MG
     Dates: start: 20010426
  30. SONATA [Concomitant]
     Dates: start: 20020510
  31. SYNTHROID [Concomitant]
     Dates: start: 20010426
  32. NOVOLOG [Concomitant]
  33. ESKALITH CR [Concomitant]
     Dates: start: 20010426
  34. LITHOBID [Concomitant]
     Dates: start: 20010731
  35. UNIRETIC [Concomitant]
     Dosage: 7.5-12.5 MG
  36. ZOCOR [Concomitant]
     Dosage: 20-40 MG
     Dates: start: 20010809
  37. PROVIGIL [Concomitant]
     Dates: start: 20060215
  38. TEMAZEPAM [Concomitant]
     Dates: start: 20031029
  39. FOLTX [Concomitant]
  40. PLAVIX [Concomitant]
     Dates: start: 20030814
  41. GLUCOPHAGE [Concomitant]
     Route: 048
     Dates: start: 20010809
  42. WELLBUTRIN SR [Concomitant]
     Route: 048
     Dates: start: 19981217
  43. GLUCOVANCE [Concomitant]
     Dosage: 2.5/500 MG
     Dates: start: 20020222

REACTIONS (9)
  - BLOOD CHOLESTEROL INCREASED [None]
  - BLOOD TRIGLYCERIDES INCREASED [None]
  - CEREBRAL ARTERY EMBOLISM [None]
  - CEREBRAL INFARCTION [None]
  - CEREBROVASCULAR ACCIDENT [None]
  - DIABETES MELLITUS [None]
  - DIABETES MELLITUS INADEQUATE CONTROL [None]
  - HYPERTENSION [None]
  - TYPE 2 DIABETES MELLITUS [None]
